FAERS Safety Report 4280485-4 (Version None)
Quarter: 2004Q1

REPORT INFORMATION
  Report Type: 
  Country: None (occurrence: None)
  Receive Date: 20040127
  Receipt Date: 20040120
  Transmission Date: 20041129
  Serious: Yes (Life-Threatening, Hospitalization, Other)
  Sender: FDA-Public Use
  Company Number: 2003122924

PATIENT
  Age: 67 Year
  Sex: Female
  Weight: 34 kg

DRUGS (4)
  1. DIFLUCAN [Suspect]
     Indication: PNEUMONIA
     Dosage: 200 MG, ORAL
     Route: 048
     Dates: start: 20031123, end: 20031123
  2. CEFPIROME SULFATE [Concomitant]
  3. IMMUNOGLOBULIN HUMAN NORMAL [Concomitant]
  4. DIGOXIN [Concomitant]

REACTIONS (5)
  - ELECTROCARDIOGRAM QRS COMPLEX SHORTENED [None]
  - ELECTROCARDIOGRAM QT PROLONGED [None]
  - TACHYCARDIA [None]
  - VENTRICULAR FIBRILLATION [None]
  - VENTRICULAR TACHYCARDIA [None]
